FAERS Safety Report 18419851 (Version 1)
Quarter: 2020Q4

REPORT INFORMATION
  Report Type: Spontaneous
  Country: NL (occurrence: NL)
  Receive Date: 20201023
  Receipt Date: 20201023
  Transmission Date: 20210114
  Serious: Yes (Other)
  Sender: FDA-Public Use
  Company Number: NL-AUROBINDO-AUR-APL-2019-084158

PATIENT
  Age: 8 Year
  Sex: Male

DRUGS (4)
  1. LEVETIRACETAM. [Suspect]
     Active Substance: LEVETIRACETAM
     Indication: STARING
     Dosage: UNK
     Route: 065
  2. VALPROATE SODIUM. [Suspect]
     Active Substance: VALPROATE SODIUM
     Indication: STARING
     Dosage: UNK
     Route: 065
  3. LAMOTRIGINE. [Suspect]
     Active Substance: LAMOTRIGINE
     Indication: STARING
     Dosage: UNK
     Route: 065
  4. CARBAMAZAPINE [Suspect]
     Active Substance: CARBAMAZEPINE
     Indication: STARING
     Dosage: UNK
     Route: 065

REACTIONS (7)
  - Anxiety [Recovering/Resolving]
  - Lethargy [Recovering/Resolving]
  - Fatigue [Recovering/Resolving]
  - Restlessness [Recovering/Resolving]
  - Ataxia [Recovering/Resolving]
  - Listless [Recovering/Resolving]
  - Anger [Recovering/Resolving]
